FAERS Safety Report 24704782 (Version 1)
Quarter: 2024Q4

REPORT INFORMATION
  Report Type: Spontaneous
  Country: DE (occurrence: DE)
  Receive Date: 20241206
  Receipt Date: 20241206
  Transmission Date: 20250114
  Serious: Yes (Other)
  Sender: BIOGEN
  Company Number: DE-002147023-NVSC2024DE184893

PATIENT
  Age: 52 Year
  Sex: Male

DRUGS (2)
  1. TYSABRI [Suspect]
     Active Substance: NATALIZUMAB
     Indication: Multiple sclerosis
     Dosage: 300 MG
     Route: 050
     Dates: start: 2013, end: 2018
  2. GILENYA [Suspect]
     Active Substance: FINGOLIMOD HYDROCHLORIDE
     Indication: Multiple sclerosis
     Dosage: 0.5 MG
     Route: 050
     Dates: start: 2012, end: 2013

REACTIONS (6)
  - Multiple sclerosis relapse [Recovered/Resolved]
  - Condition aggravated [Unknown]
  - Liver disorder [Recovered/Resolved]
  - Memory impairment [Unknown]
  - Ear disorder [Unknown]
  - Gait disturbance [Recovered/Resolved]

NARRATIVE: CASE EVENT DATE: 20130101
